FAERS Safety Report 7033987-1 (Version None)
Quarter: 2010Q4

REPORT INFORMATION
  Report Type: 
  Country: None (occurrence: None)
  Receive Date: 20101005
  Receipt Date: 20100927
  Transmission Date: 20110411
  Serious: Yes (Other)
  Sender: FDA-Public Use
  Company Number: B0677157A

PATIENT
  Age: 54 Year
  Sex: Male

DRUGS (4)
  1. PROMACTA [Suspect]
     Dates: start: 20090710
  2. CEPHALEXIN [Concomitant]
  3. AZITHROMYCIN [Concomitant]
  4. LEVOFLOXACIN [Concomitant]

REACTIONS (4)
  - BRONCHITIS [None]
  - CELLULITIS [None]
  - NEPHROPATHY TOXIC [None]
  - RENAL FAILURE ACUTE [None]
